FAERS Safety Report 4344689-4 (Version None)
Quarter: 2004Q2

REPORT INFORMATION
  Report Type: 
  Country: None (occurrence: None)
  Receive Date: 20040419
  Receipt Date: 20040409
  Transmission Date: 20050107
  Serious: Yes (Hospitalization)
  Sender: FDA-Public Use
  Company Number: 2004-04-0432

PATIENT
  Sex: Male

DRUGS (2)
  1. AERIUS (DESLORATADINE) [Suspect]
     Indication: SEASONAL ALLERGY
     Dates: start: 20040201
  2. ANTIBIOTIC [Suspect]
     Indication: SINUSITIS

REACTIONS (3)
  - HYPERSENSITIVITY [None]
  - SINUSITIS [None]
  - SUFFOCATION FEELING [None]
